FAERS Safety Report 4755855-8 (Version None)
Quarter: 2005Q3

REPORT INFORMATION
  Report Type: 
  Country: None (occurrence: None)
  Receive Date: 20050830
  Receipt Date: 20050601
  Transmission Date: 20060218
  Serious: Yes (Hospitalization)
  Sender: FDA-Public Use
  Company Number: US-BRISTOL-MYERS SQUIBB COMPANY-12990016

PATIENT
  Sex: Male

DRUGS (3)
  1. ERBITUX [Suspect]
     Dosage: LOADING DOSE (800 MG). REC'D 60 CC, STOPPED; RESTARTED, REC'D 10 CC, STOPPED.
     Route: 042
     Dates: start: 20050518, end: 20050518
  2. DECADRON [Concomitant]
     Indication: PREMEDICATION
     Route: 042
     Dates: start: 20050518, end: 20050518
  3. BENADRYL [Concomitant]
     Indication: PREMEDICATION
     Dates: start: 20050518, end: 20050518

REACTIONS (1)
  - INFUSION RELATED REACTION [None]
